FAERS Safety Report 19048629 (Version 1)
Quarter: 2021Q1

REPORT INFORMATION
  Report Type: Other
  Country: US (occurrence: US)
  Receive Date: 20210323
  Receipt Date: 20210323
  Transmission Date: 20210420
  Serious: Yes (Hospitalization)
  Sender: FDA-Public Use
  Company Number: US-ROCHE-2789158

PATIENT
  Sex: Female

DRUGS (1)
  1. OCREVUS [Suspect]
     Active Substance: OCRELIZUMAB
     Indication: RELAPSING MULTIPLE SCLEROSIS
     Dosage: PRESCRIBED AS INFUSE 300 MG AT DAY 1 AND DAY 15?DATE OF TREATMENT: 12/MAR/2020, 18/SEP/2020
     Route: 065
     Dates: start: 20200226

REACTIONS (1)
  - Pneumonia [Unknown]
